FAERS Safety Report 6449253-9 (Version None)
Quarter: 2009Q4

REPORT INFORMATION
  Report Type: 
  Country: None (occurrence: None)
  Receive Date: 20091120
  Receipt Date: 20091109
  Transmission Date: 20100525
  Serious: Yes (Life-Threatening, Hospitalization, Other)
  Sender: FDA-Public Use
  Company Number: US-PFIZER INC-2009295518

PATIENT
  Sex: Female
  Weight: 110 kg

DRUGS (5)
  1. GABAPENTIN [Suspect]
     Dosage: UNK
     Dates: start: 20090101
  2. REBIF [Suspect]
     Indication: MULTIPLE SCLEROSIS
     Dosage: 44 UG, 3 IN 1 WEEK
     Route: 058
     Dates: start: 20060101, end: 20090501
  3. ZOCOR [Concomitant]
     Dosage: 40 MG, 1X/DAY
  4. CALCIUM ACETATE [Concomitant]
     Dosage: 3 DOSAGE FORMS, 1 IN 1 DAY
     Route: 048
     Dates: start: 20090101
  5. HYDRALAZINE [Concomitant]
     Indication: HYPERTENSION
     Dosage: 25 MG, 3X/DAY
     Route: 048

REACTIONS (9)
  - AREFLEXIA [None]
  - BLOOD CREATININE INCREASED [None]
  - BLOOD GLUCOSE INCREASED [None]
  - BLOOD POTASSIUM INCREASED [None]
  - BLOOD UREA INCREASED [None]
  - DRUG TOXICITY [None]
  - HYPOTENSION [None]
  - RESPIRATORY FAILURE [None]
  - UNRESPONSIVE TO STIMULI [None]
